FAERS Safety Report 23241198 (Version 4)
Quarter: 2024Q1

REPORT INFORMATION
  Report Type: Spontaneous
  Country: DE (occurrence: DE)
  Receive Date: 20231129
  Receipt Date: 20240220
  Transmission Date: 20240410
  Serious: Yes (Hospitalization, Other)
  Sender: FDA-Public Use
  Company Number: DE-TAKEDA-2023TUS105586

PATIENT
  Sex: Female

DRUGS (5)
  1. LISDEXAMFETAMINE DIMESYLATE [Suspect]
     Active Substance: LISDEXAMFETAMINE DIMESYLATE
     Indication: Attention deficit hyperactivity disorder
     Dosage: UNK
     Route: 065
  2. LISDEXAMFETAMINE DIMESYLATE [Suspect]
     Active Substance: LISDEXAMFETAMINE DIMESYLATE
     Indication: Attention deficit hyperactivity disorder
     Dosage: 30 MILLIGRAM
     Route: 065
  3. LISDEXAMFETAMINE DIMESYLATE [Suspect]
     Active Substance: LISDEXAMFETAMINE DIMESYLATE
     Dosage: 45 MILLIGRAM
     Route: 065
  4. LISDEXAMFETAMINE DIMESYLATE [Suspect]
     Active Substance: LISDEXAMFETAMINE DIMESYLATE
     Dosage: 30 MILLIGRAM
     Route: 065
  5. LISDEXAMFETAMINE DIMESYLATE [Suspect]
     Active Substance: LISDEXAMFETAMINE DIMESYLATE
     Dosage: 50 MILLIGRAM
     Route: 065

REACTIONS (21)
  - Pelvic fracture [Unknown]
  - Road traffic accident [Unknown]
  - Drug effect less than expected [Not Recovered/Not Resolved]
  - Oral mucosal eruption [Recovered/Resolved]
  - Plicated tongue [Recovered/Resolved]
  - Tongue discomfort [Recovered/Resolved]
  - Taste disorder [Recovered/Resolved]
  - Bronchitis [Recovered/Resolved]
  - Burning mouth syndrome [Unknown]
  - Allergic reaction to excipient [Not Recovered/Not Resolved]
  - Affective disorder [Recovering/Resolving]
  - Tongue disorder [Unknown]
  - Stomatitis [Unknown]
  - Swollen tongue [Unknown]
  - Acne [Unknown]
  - Oral pain [Unknown]
  - Mouth haemorrhage [Unknown]
  - Mouth swelling [Unknown]
  - Tinnitus [Unknown]
  - Nausea [Recovered/Resolved]
  - Wrong technique in product usage process [Unknown]
